FAERS Safety Report 7032383-0 (Version None)
Quarter: 2010Q4

REPORT INFORMATION
  Report Type: 
  Country: None (occurrence: None)
  Receive Date: 20101007
  Receipt Date: 20100825
  Transmission Date: 20110411
  Serious: Yes (Other)
  Sender: FDA-Public Use
  Company Number: US-BAXTER-2010BH003523

PATIENT
  Age: 52 Year
  Sex: Female
  Weight: 95 kg

DRUGS (15)
  1. HEPARIN SODIUM INJECTION [Suspect]
     Indication: AORTIC VALVE REPLACEMENT
     Route: 058
     Dates: start: 20080201
  2. HEPARIN SODIUM INJECTION [Suspect]
     Route: 042
     Dates: start: 20080224, end: 20080224
  3. HEPARIN SODIUM INJECTION [Suspect]
     Route: 065
     Dates: start: 20080224, end: 20080224
  4. ESZOPICLONE [Concomitant]
     Indication: PRODUCT USED FOR UNKNOWN INDICATION
     Route: 065
  5. WARFARIN SODIUM [Concomitant]
     Indication: PRODUCT USED FOR UNKNOWN INDICATION
     Route: 065
  6. LORAZEPAM [Concomitant]
     Indication: PRODUCT USED FOR UNKNOWN INDICATION
     Route: 065
  7. TRIAMTERENE AND HYDROCHLOROTHIAZID ^HARRIS^ [Concomitant]
     Indication: PRODUCT USED FOR UNKNOWN INDICATION
     Route: 065
  8. ISONIAZID [Concomitant]
     Indication: PRODUCT USED FOR UNKNOWN INDICATION
     Route: 065
  9. CYCLOBENZAPRINE [Concomitant]
     Indication: PRODUCT USED FOR UNKNOWN INDICATION
     Route: 065
  10. ALBUTEROL [Concomitant]
     Indication: PRODUCT USED FOR UNKNOWN INDICATION
     Route: 065
  11. ADVAIR DISKUS 100/50 [Concomitant]
     Indication: PRODUCT USED FOR UNKNOWN INDICATION
     Route: 065
  12. METOPROLOL TARTRATE [Concomitant]
     Indication: PRODUCT USED FOR UNKNOWN INDICATION
     Route: 065
  13. DARVON-N [Concomitant]
     Indication: PRODUCT USED FOR UNKNOWN INDICATION
     Route: 065
  14. ASPIRIN [Concomitant]
     Indication: PRODUCT USED FOR UNKNOWN INDICATION
     Route: 065
  15. SINGULAIR [Concomitant]
     Indication: PRODUCT USED FOR UNKNOWN INDICATION
     Route: 065

REACTIONS (8)
  - ATRIAL FIBRILLATION [None]
  - HYPOTENSION [None]
  - HYPOXIA [None]
  - NAUSEA [None]
  - PYREXIA [None]
  - SWELLING [None]
  - THROMBOSIS [None]
  - VEIN DISORDER [None]
